FAERS Safety Report 6844180-7 (Version None)
Quarter: 2010Q3

REPORT INFORMATION
  Report Type: 
  Country: None (occurrence: None)
  Receive Date: 20100712
  Receipt Date: 20100628
  Transmission Date: 20110219
  Serious: Yes (Life-Threatening, Hospitalization)
  Sender: FDA-Public Use
  Company Number: FRP10000737

PATIENT
  Age: 73 Year
  Sex: Female

DRUGS (18)
  1. ACTONEL [Suspect]
     Indication: OSTEOPOROSIS
     Dosage: 35 MG, 1 /WEEK, ORAL
     Route: 048
     Dates: end: 20100429
  2. TOPALGIC /00599202/ (TRAMADOL HYDROCHLORIDE) [Suspect]
     Indication: SCIATICA
     Dosage: 1 DF, 2 /DAY, ORAL
     Route: 048
     Dates: start: 20100421, end: 20100429
  3. ZELITREX /01269701/ (VALACICLOVIR) [Suspect]
     Indication: HERPES ZOSTER
     Dosage: 500 MG, 6 /DAY, ORAL
     Route: 048
     Dates: start: 20100429, end: 20100429
  4. GABAPENTINE (GABAPENTIN) [Suspect]
     Indication: NEURALGIA
     Dosage: 300 MG, 1 /DAY, ORAL
     Route: 048
     Dates: start: 20100428, end: 20100429
  5. GLUCOPHAGE /00082701/ (METFORMIN) [Suspect]
     Indication: TYPE 2 DIABETES MELLITUS
     Dosage: 1000 MG, 3 /DAY, ORAL
     Route: 048
     Dates: end: 20100429
  6. ATENOLOL [Suspect]
     Indication: HYPERTENSION
     Dosage: 150 MG, 1 /DAY, ORAL
     Route: 048
     Dates: end: 20100429
  7. LASILIX /00032601/ (FUROSEMIDE) [Suspect]
     Indication: HYPERTENSION
     Dosage: 40 MG, 1 /DAY, ORAL
     Route: 048
     Dates: end: 20100429
  8. TENSTATEN /00924301/ (CICLETANINE) [Suspect]
     Indication: HYPERTENSION
     Dosage: 50 MG, 2 /DAY, ORAL
     Route: 048
     Dates: end: 20100429
  9. ALLOPURINOL [Suspect]
     Dosage: 300 MG, 1 /DAY, ORAL
     Route: 048
     Dates: end: 20100429
  10. CALCIDOSE VITAMINE D (CALCIUM CARBONATE, COLECALCIFEROL) [Suspect]
     Indication: OSTEOPOROSIS
     Dosage: 2 DF, 1 /DAY, ORAL
     Route: 048
     Dates: end: 20100429
  11. TARDYFERON /00023503/ (FERROUS SULFATE) [Suspect]
     Dosage: 80 MG, 2 /DAY, ORAL
     Route: 048
     Dates: end: 20100429
  12. SINTROM [Suspect]
     Dosage: 1 MG, 1 /DAY, ORAL
     Route: 048
     Dates: end: 20100429
  13. HUMALOG /00030501/ (INSULIN) [Concomitant]
  14. COVERSYL /00790701/ (PERINDOPRIL) [Concomitant]
  15. LANTUS /01483501/ (INSULIN GLARGINE) [Concomitant]
  16. HUMALOG MIX 75/25 [Concomitant]
  17. INIPOMP /01263201/ (PANTOPRAZOLE) [Concomitant]
  18. PREDNISONE TAB [Concomitant]

REACTIONS (13)
  - BLOOD GLUCOSE INCREASED [None]
  - BLOOD POTASSIUM INCREASED [None]
  - COMA [None]
  - DEHYDRATION [None]
  - HERPES ZOSTER [None]
  - HYPOTENSION [None]
  - NEURALGIA [None]
  - PNEUMONIA ASPIRATION [None]
  - RASH PUSTULAR [None]
  - RENAL FAILURE ACUTE [None]
  - RESPIRATORY DISTRESS [None]
  - SCIATICA [None]
  - SHOCK [None]
